FAERS Safety Report 7898302-X (Version None)
Quarter: 2011Q4

REPORT INFORMATION
  Report Type: 
  Country: None (occurrence: None)
  Receive Date: 20111107
  Receipt Date: 20111025
  Transmission Date: 20120403
  Serious: Yes (Other)
  Sender: FDA-Public Use
  Company Number: US-ASTRAZENECA-2011SE64728

PATIENT
  Age: 710 Month
  Sex: Male

DRUGS (5)
  1. PRILOSEC [Suspect]
     Route: 048
  2. PRILOSEC [Suspect]
     Route: 048
  3. NEXIUM [Suspect]
     Route: 048
  4. ZANTAC [Concomitant]
  5. NEXIUM [Suspect]
     Dosage: TWO TIMES A DAY
     Route: 048

REACTIONS (7)
  - CEREBROVASCULAR ACCIDENT [None]
  - RENAL CANCER [None]
  - THROAT CANCER [None]
  - OESOPHAGEAL ULCER [None]
  - GASTRIC ULCER [None]
  - DRUG INEFFECTIVE [None]
  - MYOCARDIAL INFARCTION [None]
